FAERS Safety Report 19696733 (Version 1)
Quarter: 2021Q3

REPORT INFORMATION
  Report Type: Spontaneous
  Country: US (occurrence: US)
  Receive Date: 20210813
  Receipt Date: 20210813
  Transmission Date: 20211014
  Serious: Yes (Other)
  Sender: FDA-Public Use
  Company Number: US-TOLMAR, INC.-21US028895

PATIENT
  Age: 57 Year
  Sex: Male

DRUGS (2)
  1. KETOCONAZOLE. [Suspect]
     Active Substance: KETOCONAZOLE
     Indication: ANDROGENETIC ALOPECIA
     Dosage: UNK, 2/WEEK
     Route: 003
  2. FINASTERIDE. [Suspect]
     Active Substance: FINASTERIDE
     Indication: ANDROGENETIC ALOPECIA
     Dosage: UNK
     Dates: start: 202106, end: 2021

REACTIONS (4)
  - Hair texture abnormal [Not Recovered/Not Resolved]
  - Erectile dysfunction [Recovered/Resolved]
  - Drug ineffective for unapproved indication [Unknown]
  - Libido decreased [Recovered/Resolved]
